FAERS Safety Report 15896560 (Version 1)
Quarter: 2019Q1

REPORT INFORMATION
  Report Type: Report from Study
  Country: US (occurrence: US)
  Receive Date: 20190131
  Receipt Date: 20190131
  Transmission Date: 20190417
  Serious: Yes (Hospitalization)
  Sender: FDA-Public Use
  Company Number: US-ACTELION-A-NJ2019-185498

PATIENT
  Age: 46 Year
  Sex: Female

DRUGS (12)
  1. OPSUMIT [Suspect]
     Active Substance: MACITENTAN
     Indication: PULMONARY ARTERIAL HYPERTENSION
     Dosage: 10 MG, QD
     Route: 048
     Dates: start: 20140818
  2. ULTRACET [Concomitant]
     Active Substance: ACETAMINOPHEN\TRAMADOL HYDROCHLORIDE
  3. SYMBICORT [Concomitant]
     Active Substance: BUDESONIDE\FORMOTEROL FUMARATE DIHYDRATE
  4. CELEBREX [Concomitant]
     Active Substance: CELECOXIB
  5. ALBUTEROL. [Concomitant]
     Active Substance: ALBUTEROL
  6. PEPCID [Concomitant]
     Active Substance: FAMOTIDINE
  7. NEURONTIN [Concomitant]
     Active Substance: GABAPENTIN
  8. PLAQUENIL [Concomitant]
     Active Substance: HYDROXYCHLOROQUINE SULFATE
  9. PRILOSEC [Concomitant]
     Active Substance: OMEPRAZOLE MAGNESIUM
  10. ADEMPAS [Concomitant]
     Active Substance: RIOCIGUAT
  11. TRAMADOL. [Concomitant]
     Active Substance: TRAMADOL
  12. RITUXAN [Concomitant]
     Active Substance: RITUXIMAB

REACTIONS (2)
  - Menorrhagia [Unknown]
  - Haemoglobin decreased [Unknown]

NARRATIVE: CASE EVENT DATE: 20181224
